FAERS Safety Report 13428576 (Version 3)
Quarter: 2017Q2

REPORT INFORMATION
  Report Type: Spontaneous
  Country: JP (occurrence: JP)
  Receive Date: 20170411
  Receipt Date: 20170518
  Transmission Date: 20170830
  Serious: Yes (Hospitalization)
  Sender: FDA-Public Use
  Company Number: JP-PFIZER INC-2017156220

PATIENT
  Age: 44 Year
  Sex: Male

DRUGS (2)
  1. ARGATROBAN. [Suspect]
     Active Substance: ARGATROBAN
     Indication: CEREBRAL ISCHAEMIA
     Dosage: UNK
     Route: 041
  2. OZAGREL SODIUM [Suspect]
     Active Substance: OZAGREL SODIUM
     Indication: CEREBRAL ISCHAEMIA
     Dosage: UNK
     Route: 041

REACTIONS (1)
  - Cerebral infarction [Recovered/Resolved]
